FAERS Safety Report 6010451-X (Version None)
Quarter: 2008Q4

REPORT INFORMATION
  Report Type: 
  Country: None (occurrence: None)
  Receive Date: 20081218
  Receipt Date: 20071213
  Transmission Date: 20090506
  Serious: No
  Sender: FDA-Public Use
  Company Number: US-AMGEN-KDL256733

PATIENT

DRUGS (2)
  1. ENBREL [Suspect]
     Indication: PSORIASIS
  2. ISOTRETINOIN [Concomitant]

REACTIONS (1)
  - DRUG INEFFECTIVE [None]
